FAERS Safety Report 5407578-X (Version None)
Quarter: 2007Q3

REPORT INFORMATION
  Report Type: 
  Country: None (occurrence: None)
  Receive Date: 20070807
  Receipt Date: 20070731
  Transmission Date: 20080115
  Serious: Yes (Hospitalization)
  Sender: FDA-Public Use
  Company Number: IT-ROXANE LABORATORIES, INC-2007-DE-04309GD

PATIENT
  Age: 62 Year
  Sex: Male

DRUGS (1)
  1. SERTRALINE [Suspect]
     Indication: ASTROCYTOMA

REACTIONS (2)
  - TOXIC EPIDERMAL NECROLYSIS [None]
  - WOUND INFECTION STAPHYLOCOCCAL [None]
